FAERS Safety Report 20554645 (Version 2)
Quarter: 2022Q3

REPORT INFORMATION
  Report Type: Spontaneous
  Country: TR (occurrence: TR)
  Receive Date: 20220304
  Receipt Date: 20220707
  Transmission Date: 20221026
  Serious: Yes (Other)
  Sender: FDA-Public Use
  Company Number: TR-MLMSERVICE-20220216-3377342-2

PATIENT

DRUGS (1)
  1. SOMATROPIN [Suspect]
     Active Substance: SOMATROPIN
     Indication: Growth retardation
     Dosage: 27.5 UG/KG, 1 TIME DAILY
     Route: 065

REACTIONS (4)
  - Insulin-like growth factor increased [Unknown]
  - Insulin resistance [Unknown]
  - Blood insulin increased [Unknown]
  - Product use in unapproved indication [Unknown]
